FAERS Safety Report 25270383 (Version 1)
Quarter: 2025Q2

REPORT INFORMATION
  Report Type: Report from Study
  Country: US (occurrence: US)
  Receive Date: 20250505
  Receipt Date: 20250505
  Transmission Date: 20250716
  Serious: Yes (Hospitalization)
  Sender: ALEXION PHARMACEUTICALS
  Company Number: US-ASTRAZENECA-202504USA028085US

PATIENT
  Age: 52 Year

DRUGS (1)
  1. STRENSIQ [Suspect]
     Active Substance: ASFOTASE ALFA
     Indication: Phosphorus metabolism disorder
     Dosage: 140 MILLIGRAM, TIW
     Route: 065

REACTIONS (5)
  - Dizziness [Unknown]
  - Loss of consciousness [Unknown]
  - Fall [Unknown]
  - Craniofacial fracture [Unknown]
  - Tooth loss [Unknown]
